FAERS Safety Report 5275102-0 (Version None)
Quarter: 2007Q1

REPORT INFORMATION
  Report Type: 
  Country: None (occurrence: None)
  Receive Date: 20070326
  Receipt Date: 20070319
  Transmission Date: 20070707
  Serious: Yes (Other)
  Sender: FDA-Public Use
  Company Number: US-BAYER-200710673BCC

PATIENT
  Age: 65 Year
  Sex: Female
  Weight: 64 kg

DRUGS (5)
  1. ALEVE [Suspect]
     Indication: MYALGIA
     Dosage: TOTAL DAILY DOSE: 880 MG  UNIT DOSE: 220 MG
     Route: 048
     Dates: start: 20060901
  2. ALEVE [Suspect]
     Dosage: TOTAL DAILY DOSE: 220 MG  UNIT DOSE: 220 MG
     Route: 048
     Dates: start: 20060901
  3. ALEVE [Suspect]
     Dosage: TOTAL DAILY DOSE: 440 MG  UNIT DOSE: 220 MG
     Route: 048
     Dates: start: 20070301
  4. AVAPRO [Suspect]
  5. ZOCOR [Suspect]

REACTIONS (4)
  - CHEST DISCOMFORT [None]
  - HEART RATE INCREASED [None]
  - MYALGIA [None]
  - PAIN IN EXTREMITY [None]
